FAERS Safety Report 23684207 (Version 2)
Quarter: 2024Q2

REPORT INFORMATION
  Report Type: Spontaneous
  Country: JP (occurrence: JP)
  Receive Date: 20240328
  Receipt Date: 20240420
  Transmission Date: 20240716
  Serious: Yes (Hospitalization)
  Sender: FDA-Public Use
  Company Number: JP-Merck Healthcare KGaA-2024014923

PATIENT
  Age: 49 Year
  Sex: Male

DRUGS (6)
  1. ERBITUX [Suspect]
     Active Substance: CETUXIMAB
     Indication: Tongue cancer recurrent
     Dosage: 400 MG/M2, OTHER
     Route: 041
     Dates: start: 20200801, end: 20200801
  2. ERBITUX [Suspect]
     Active Substance: CETUXIMAB
     Dosage: 250 MG/M2, WEEKLY (1/W)
     Route: 041
  3. CARBOPLATIN [Suspect]
     Active Substance: CARBOPLATIN
     Indication: Tongue cancer recurrent
     Dosage: UNK UNK, UNKNOWN
     Route: 065
     Dates: start: 202008
  4. CARBOPLATIN [Suspect]
     Active Substance: CARBOPLATIN
     Dosage: UNK
     Route: 065
     Dates: start: 20200801
  5. FLUOROURACIL [Suspect]
     Active Substance: FLUOROURACIL
     Indication: Tongue cancer recurrent
     Dosage: UNK, UNKNOWN
     Route: 065
     Dates: start: 202008
  6. FLUOROURACIL [Suspect]
     Active Substance: FLUOROURACIL
     Dosage: UNK
     Route: 065
     Dates: start: 20200801

REACTIONS (2)
  - Pneumatosis intestinalis [Recovering/Resolving]
  - Off label use [Unknown]

NARRATIVE: CASE EVENT DATE: 20201001
